FAERS Safety Report 7156624-4 (Version None)
Quarter: 2010Q4

REPORT INFORMATION
  Report Type: 
  Country: None (occurrence: None)
  Receive Date: 20101214
  Receipt Date: 20091118
  Transmission Date: 20110411
  Serious: No
  Sender: FDA-Public Use
  Company Number: US-ASTRAZENECA-2009SE16251

PATIENT
  Age: 92 Year
  Sex: Female
  Weight: 51.7 kg

DRUGS (10)
  1. CRESTOR [Suspect]
     Indication: BLOOD CHOLESTEROL
     Route: 048
     Dates: start: 20070101
  2. CRESTOR [Suspect]
     Route: 048
  3. CRESTOR [Suspect]
     Route: 048
  4. KLOR-CON M10 [Concomitant]
  5. METOPROLOL [Concomitant]
  6. NITROGLYCERIN [Concomitant]
     Indication: CARDIAC DISORDER
  7. OMEPRAZOLE [Concomitant]
     Indication: HIATUS HERNIA
  8. RAMIPRIL [Concomitant]
  9. ST JOSEPH BABY ASPIRIN [Concomitant]
  10. SYNTHROID [Concomitant]
     Indication: THYROID DISORDER

REACTIONS (2)
  - MUSCLE SPASMS [None]
  - PAIN IN EXTREMITY [None]
